FAERS Safety Report 16658045 (Version 1)
Quarter: 2019Q3

REPORT INFORMATION
  Report Type: Report from Study
  Country: ZA (occurrence: ZA)
  Receive Date: 20190801
  Receipt Date: 20190801
  Transmission Date: 20191004
  Serious: Yes (Other)
  Sender: FDA-Public Use
  Company Number: ZA-SA-2019SA205149

PATIENT
  Age: 58 Year
  Sex: Female

DRUGS (3)
  1. GLUCOPHAGE [Concomitant]
     Active Substance: METFORMIN HYDROCHLORIDE
     Dosage: 150 MG, QD AFTER BREAKFAST
     Dates: start: 20190531
  2. INSULIN GLARGINE [Suspect]
     Active Substance: INSULIN GLARGINE
     Dosage: 10 U, HS
     Dates: start: 20190326
  3. GLYCOMIN [GLIBENCLAMIDE] [Concomitant]
     Dosage: 2.5 MG, QD AFTER BREAKFAST
     Dates: start: 20190424

REACTIONS (3)
  - Cough [Not Recovered/Not Resolved]
  - Influenza [Not Recovered/Not Resolved]
  - Chest discomfort [Not Recovered/Not Resolved]
